FAERS Safety Report 8557363 (Version 3)
Quarter: 2015Q1

REPORT INFORMATION
  Report Type: Report from Study
  Country: FR (occurrence: FR)
  Receive Date: 20120511
  Receipt Date: 20150331
  Transmission Date: 20150721
  Serious: Yes (Life-Threatening, Hospitalization, Disabling)
  Sender: FDA-Public Use
  Company Number: PHHO2012FR007073

PATIENT
  Age: 98 Year
  Sex: Female

DRUGS (7)
  1. BLINDED NO TREATMENT RECEIVED [Suspect]
     Active Substance: UNSPECIFIED INGREDIENT
     Indication: CONFUSIONAL STATE
     Dosage: CODE NOT BROKEN
     Route: 062
     Dates: end: 20111107
  2. ACETYLSALICYLIC ACID [Suspect]
     Active Substance: ASPIRIN
     Indication: PRODUCT USED FOR UNKNOWN INDICATION
     Dosage: 100 MG, UNK
     Route: 048
     Dates: start: 20111027, end: 20111107
  3. PLACEBO [Suspect]
     Active Substance: UNSPECIFIED INGREDIENT
     Indication: CONFUSIONAL STATE
     Dosage: CODE NOT BROKEN
     Route: 062
     Dates: end: 20111107
  4. BLINDED RIVASTIGMIN [Suspect]
     Active Substance: RIVASTIGMINE
     Indication: CONFUSIONAL STATE
     Dosage: CODE NOT BROKEN
     Route: 062
     Dates: end: 20111107
  5. CALCIPARINE [Suspect]
     Active Substance: HEPARIN CALCIUM
     Indication: BEDRIDDEN
     Dosage: 5000 IU, BID
     Route: 058
     Dates: start: 20111027, end: 20111107
  6. ATACAND [Concomitant]
     Active Substance: CANDESARTAN CILEXETIL
     Indication: HYPERTENSION
     Dosage: 8 MG, QD
     Route: 048
     Dates: start: 20111027
  7. GLUCOSE [Concomitant]
     Active Substance: DEXTROSE
     Indication: DEHYDRATION
     Dosage: 500 ML, QD
     Route: 058
     Dates: start: 20111027, end: 20111107

REACTIONS (1)
  - Ischaemic stroke [Not Recovered/Not Resolved]

NARRATIVE: CASE EVENT DATE: 20111107
